FAERS Safety Report 17563141 (Version 2)
Quarter: 2020Q2

REPORT INFORMATION
  Report Type: Spontaneous
  Country: FR (occurrence: FR)
  Receive Date: 20200319
  Receipt Date: 20200508
  Transmission Date: 20200713
  Serious: Yes (Hospitalization, Other)
  Sender: FDA-Public Use
  Company Number: FR-BAUSCH-BL-2020-008211

PATIENT
  Age: 68 Year
  Sex: Female

DRUGS (4)
  1. DIHYDROERGOTAMINE METHANSULPHONATE [Concomitant]
     Indication: PRODUCT USED FOR UNKNOWN INDICATION
  2. CLOMIPRAMINE [Concomitant]
     Active Substance: CLOMIPRAMINE
     Indication: PRODUCT USED FOR UNKNOWN INDICATION
  3. MEPROBAMATE. [Concomitant]
     Active Substance: MEPROBAMATE
     Indication: PRODUCT USED FOR UNKNOWN INDICATION
  4. METRONIDAZOLE. [Suspect]
     Active Substance: METRONIDAZOLE
     Indication: ALCOHOL DETOXIFICATION
     Dosage: REGULAR 6 TABLETS TOTAL 1.5 G
     Route: 065
     Dates: start: 198509, end: 198511

REACTIONS (4)
  - Dysdiadochokinesis [Recovered/Resolved]
  - Hyporeflexia [Recovered/Resolved]
  - Cerebellar syndrome [Recovered/Resolved]
  - Gait disturbance [Recovered/Resolved]

NARRATIVE: CASE EVENT DATE: 1985
